FAERS Safety Report 19477788 (Version 1)
Quarter: 2021Q2

REPORT INFORMATION
  Report Type: Spontaneous
  Country: US (occurrence: US)
  Receive Date: 20210630
  Receipt Date: 20210630
  Transmission Date: 20210717
  Serious: No
  Sender: FDA-Public Use
  Company Number: US-KRAMERLABS-2021-US-007429

PATIENT
  Age: 69 Year
  Sex: Male
  Weight: 73.48 kg

DRUGS (6)
  1. FLONASE [Concomitant]
     Active Substance: FLUTICASONE PROPIONATE
  2. VITAMIN D [Concomitant]
     Active Substance: VITAMIN D NOS
  3. RASAGILINE. [Concomitant]
     Active Substance: RASAGILINE
  4. IBUPROFEN. [Concomitant]
     Active Substance: IBUPROFEN
  5. NIZORAL A?D [Suspect]
     Active Substance: KETOCONAZOLE
     Indication: PRURITUS
     Dosage: APPLIED TO SCALP EVERY COUPLE OF DAYS, USED ON GROIN AND ARMPIT HAIR
     Route: 061
     Dates: start: 202101, end: 202103
  6. VITAMIN C [Concomitant]
     Active Substance: ASCORBIC ACID

REACTIONS (4)
  - Inappropriate schedule of product administration [Recovered/Resolved]
  - Drug ineffective [Recovered/Resolved]
  - Intentional product misuse [Recovered/Resolved]
  - Product use in unapproved indication [Recovered/Resolved]

NARRATIVE: CASE EVENT DATE: 202101
